FAERS Safety Report 19936716 (Version 2)
Quarter: 2021Q4

REPORT INFORMATION
  Report Type: Spontaneous
  Country: LT (occurrence: LT)
  Receive Date: 20211008
  Receipt Date: 20211014
  Transmission Date: 20220303
  Serious: Yes (Death)
  Sender: FDA-Public Use
  Company Number: LT-BAXTER-2021BAX031433

PATIENT
  Age: 68 Year
  Sex: Female

DRUGS (1)
  1. DOXORUBICIN HYDROCHLORIDE [Suspect]
     Active Substance: DOXORUBICIN HYDROCHLORIDE
     Indication: Hepatic angiosarcoma
     Route: 065

REACTIONS (3)
  - Hypovolaemic shock [Fatal]
  - Condition aggravated [Fatal]
  - Disseminated intravascular coagulation [Fatal]
